FAERS Safety Report 5851718-5 (Version None)
Quarter: 2008Q3

REPORT INFORMATION
  Report Type: 
  Country: None (occurrence: None)
  Receive Date: 20080820
  Receipt Date: 20080818
  Transmission Date: 20090109
  Serious: No
  Sender: FDA-Public Use
  Company Number: US-BOEHRINGER INGELHEIM GMBH, GERMANY-2008-BP-12197BP

PATIENT
  Sex: Male

DRUGS (10)
  1. CATAPRES-TTS-1 [Suspect]
     Indication: HYPERTENSION
     Route: 061
     Dates: start: 20080601
  2. CATAPRES-TTS-1 [Suspect]
     Indication: VOMITING
  3. ATENOLOL [Concomitant]
  4. HYZAAR [Concomitant]
  5. POTASSIUM CHLORIDE [Concomitant]
  6. ASPIRIN [Concomitant]
     Indication: PAIN
  7. PLAVIX [Concomitant]
  8. NOVOLIN [Concomitant]
  9. JANUVIA [Concomitant]
  10. ARICEPT [Concomitant]
     Indication: PAIN

REACTIONS (3)
  - BLOOD PRESSURE INCREASED [None]
  - DRUG INEFFECTIVE [None]
  - VOMITING [None]
